FAERS Safety Report 20753277 (Version 5)
Quarter: 2022Q3

REPORT INFORMATION
  Report Type: Report from Study
  Country: JP (occurrence: JP)
  Receive Date: 20220426
  Receipt Date: 20220905
  Transmission Date: 20221026
  Serious: Yes (Hospitalization, Other)
  Sender: FDA-Public Use
  Company Number: JP-ONO-2022JP010675

PATIENT
  Age: 53 Year
  Sex: Male
  Weight: 98 kg

DRUGS (46)
  1. ETELCALCETIDE [Suspect]
     Active Substance: ETELCALCETIDE
     Indication: Hyperparathyroidism secondary
     Dosage: 2.5 MG, Q56H
     Route: 065
     Dates: start: 20200313, end: 20200410
  2. ETELCALCETIDE [Suspect]
     Active Substance: ETELCALCETIDE
     Dosage: 5 MILLIGRAM, Q56H
     Route: 065
     Dates: start: 20200413, end: 20200508
  3. ETELCALCETIDE [Suspect]
     Active Substance: ETELCALCETIDE
     Dosage: 10 MILLIGRAM, Q56H
     Route: 065
     Dates: start: 20200511, end: 20210709
  4. ETELCALCETIDE [Suspect]
     Active Substance: ETELCALCETIDE
     Dosage: 5 MILLIGRAM,  Q56H
     Route: 065
     Dates: start: 20210712, end: 20220309
  5. DARBEPOETIN ALFA [Concomitant]
     Active Substance: DARBEPOETIN ALFA
     Dosage: 60 MICROGRAM, QWK
     Route: 065
     Dates: start: 20200203, end: 20200217
  6. DARBEPOETIN ALFA [Concomitant]
     Active Substance: DARBEPOETIN ALFA
     Dosage: 40 MICROGRAM, QWK
     Route: 065
     Dates: start: 20200224, end: 20200309
  7. DARBEPOETIN ALFA [Concomitant]
     Active Substance: DARBEPOETIN ALFA
     Dosage: 30 MICROGRAM, QWK
     Route: 065
     Dates: start: 20200316, end: 20200323
  8. DARBEPOETIN ALFA [Concomitant]
     Active Substance: DARBEPOETIN ALFA
     Dosage: 20 MICROGRAM, QWK
     Route: 065
     Dates: start: 20200330, end: 20200420
  9. DARBEPOETIN ALFA [Concomitant]
     Active Substance: DARBEPOETIN ALFA
     Dosage: 20 MICROGRAM, QWK
     Route: 065
     Dates: start: 20210412, end: 20220207
  10. DARBEPOETIN ALFA [Concomitant]
     Active Substance: DARBEPOETIN ALFA
     Dosage: 30 MICROGRAM, QWK
     Route: 065
     Dates: start: 20220214, end: 20220228
  11. DARBEPOETIN ALFA [Concomitant]
     Active Substance: DARBEPOETIN ALFA
     Dosage: 40 MICROGRAM, QWK
     Route: 065
     Dates: start: 20220307, end: 20220404
  12. DARBEPOETIN ALFA [Concomitant]
     Active Substance: DARBEPOETIN ALFA
     Dosage: 60 MICROGRAM, QWK
     Route: 065
     Dates: start: 20220411, end: 20220418
  13. DARBEPOETIN ALFA [Concomitant]
     Active Substance: DARBEPOETIN ALFA
     Dosage: 40 MICROGRAM, QWK
     Route: 065
     Dates: start: 20220425, end: 20220509
  14. DARBEPOETIN ALFA [Concomitant]
     Active Substance: DARBEPOETIN ALFA
     Dosage: 60 MICROGRAM, QWK
     Route: 065
     Dates: start: 20220516
  15. ROCALTROL [Concomitant]
     Active Substance: CALCITRIOL
     Dosage: 0.5 MICROGRAM, QD
     Route: 048
     Dates: start: 20220309
  16. ROCALTROL [Concomitant]
     Active Substance: CALCITRIOL
     Dosage: 0.25 MICROGRAM, QD
     Route: 048
     Dates: start: 20220311, end: 20220330
  17. ROCALTROL [Concomitant]
     Active Substance: CALCITRIOL
     Dosage: 0.25 MICROGRAM, QD
     Route: 048
     Dates: start: 20220506
  18. CALCITRIOL [Concomitant]
     Active Substance: CALCITRIOL
     Dosage: 0.5 UG, Q56H
     Route: 041
     Dates: start: 20200615, end: 20200710
  19. CALCITRIOL [Concomitant]
     Active Substance: CALCITRIOL
     Dosage: 1 UG, Q56H
     Dates: start: 20200713, end: 20200911
  20. CALCITRIOL [Concomitant]
     Active Substance: CALCITRIOL
     Dosage: 1.5 UG, Q56H
     Dates: start: 20200914, end: 20210709
  21. CALCITRIOL [Concomitant]
     Active Substance: CALCITRIOL
     Dosage: 1 UG, Q56H
     Dates: start: 20210712, end: 20220309
  22. EVOCALCET [Concomitant]
     Active Substance: EVOCALCET
     Dosage: 2 MILLIGRAM, QD
     Route: 048
     Dates: start: 20200110, end: 20200312
  23. EVOCALCET [Concomitant]
     Active Substance: EVOCALCET
     Dosage: 2 MILLIGRAM, QD
     Route: 048
     Dates: start: 20220309
  24. EVOCALCET [Concomitant]
     Active Substance: EVOCALCET
     Dosage: 2 MILLIGRAM, QD
     Route: 048
     Dates: start: 20220311, end: 20220330
  25. EVOCALCET [Concomitant]
     Active Substance: EVOCALCET
     Dosage: 2 MILLIGRAM, QD
     Route: 048
     Dates: start: 20220506
  26. FOSRENOL [Concomitant]
     Active Substance: LANTHANUM CARBONATE
     Dosage: 2250 MILLIGRAM, QD
     Route: 048
     Dates: end: 20220308
  27. FOSRENOL [Concomitant]
     Active Substance: LANTHANUM CARBONATE
     Dosage: 1500 MILLIGRAM, QD
     Route: 048
     Dates: start: 20220309, end: 20220322
  28. FOSRENOL [Concomitant]
     Active Substance: LANTHANUM CARBONATE
     Dosage: 1500 MILLIGRAM, QD
     Route: 048
     Dates: start: 20220506
  29. CALCIUM CARBONATE [Concomitant]
     Active Substance: CALCIUM CARBONATE
     Dosage: 3000 MILLIGRAM, QD
     Route: 048
     Dates: end: 20200512
  30. FERRIC CITRATE ANHYDROUS [Concomitant]
     Active Substance: FERRIC CITRATE ANHYDROUS
     Dosage: 750 MILLIGRAM, QD
     Route: 048
     Dates: start: 20200110, end: 20200204
  31. FERRIC CITRATE ANHYDROUS [Concomitant]
     Active Substance: FERRIC CITRATE ANHYDROUS
     Dosage: 1500 MILLIGRAM, QD
     Route: 048
     Dates: start: 20200205, end: 20200519
  32. FERRIC CITRATE ANHYDROUS [Concomitant]
     Active Substance: FERRIC CITRATE ANHYDROUS
     Dosage: 750 MILLIGRAM, QD
     Route: 048
     Dates: start: 20200520, end: 20210119
  33. P-tol [Concomitant]
     Dosage: 1500 MILLIGRAM, QD
     Route: 048
     Dates: start: 20210120, end: 20211221
  34. Fesin [Concomitant]
     Dosage: 40 MILLIGRAM, QWK
     Route: 065
     Dates: end: 20191111
  35. Fesin [Concomitant]
     Dosage: 40 MILLIGRAM, QWK
     Dates: start: 20200210, end: 20200504
  36. Fesin [Concomitant]
     Dosage: 40 MILLIGRAM, QWK
     Dates: start: 20210315, end: 20210607
  37. DARBEPOETIN ALFA [Concomitant]
     Active Substance: DARBEPOETIN ALFA
     Dosage: 60 MICROGRAM, QWK
     Route: 065
     Dates: start: 20200203, end: 20200217
  38. DARBEPOETIN ALFA [Concomitant]
     Active Substance: DARBEPOETIN ALFA
     Dosage: 40 MICROGRAM, QWK
     Dates: start: 20200224, end: 20200309
  39. DARBEPOETIN ALFA [Concomitant]
     Active Substance: DARBEPOETIN ALFA
     Dosage: 30 MICROGRAM, QWK
     Dates: start: 20200316, end: 20200323
  40. DARBEPOETIN ALFA [Concomitant]
     Active Substance: DARBEPOETIN ALFA
     Dosage: 20 MICROGRAM, QWK
     Dates: start: 20200330, end: 20200420
  41. DARBEPOETIN ALFA [Concomitant]
     Active Substance: DARBEPOETIN ALFA
     Dosage: 20 MICROGRAM, QWK
     Dates: start: 20210412, end: 20220207
  42. DARBEPOETIN ALFA [Concomitant]
     Active Substance: DARBEPOETIN ALFA
     Dosage: 30 MICROGRAM, QWK
     Dates: start: 20220214, end: 20220228
  43. DARBEPOETIN ALFA [Concomitant]
     Active Substance: DARBEPOETIN ALFA
     Dosage: 40 MICROGRAM, QWK
     Dates: start: 20220307, end: 20220404
  44. DARBEPOETIN ALFA [Concomitant]
     Active Substance: DARBEPOETIN ALFA
     Dosage: 60 MICROGRAM, QWK
     Dates: start: 20220411, end: 20220418
  45. DARBEPOETIN ALFA [Concomitant]
     Active Substance: DARBEPOETIN ALFA
     Dosage: 40 MICROGRAM, QWK
     Dates: start: 20220425, end: 20220509
  46. DARBEPOETIN ALFA [Concomitant]
     Active Substance: DARBEPOETIN ALFA
     Dosage: 60 MICROGRAM, QWK
     Dates: start: 20220516

REACTIONS (3)
  - Upper gastrointestinal haemorrhage [Not Recovered/Not Resolved]
  - Nausea [Recovered/Resolved]
  - Underdose [Unknown]

NARRATIVE: CASE EVENT DATE: 20200313
